FAERS Safety Report 7692512-2 (Version None)
Quarter: 2011Q3

REPORT INFORMATION
  Report Type: 
  Country: None (occurrence: None)
  Receive Date: 20110819
  Receipt Date: 20110812
  Transmission Date: 20111222
  Serious: Yes (Hospitalization)
  Sender: FDA-Public Use
  Company Number: US-BRISTOL-MYERS SQUIBB COMPANY-15899552

PATIENT
  Age: 67 Year
  Sex: Male

DRUGS (3)
  1. ASACOL [Suspect]
     Indication: COLITIS ULCERATIVE
     Dosage: LATE 2010,MANY YEARS
     Dates: end: 20100101
  2. AMPYRA [Suspect]
     Dosage: 3-4MONTHS,LATE 2010
     Dates: start: 20100408, end: 20101101
  3. CEFEPIME [Suspect]
     Indication: WOUND INFECTION
     Dosage: STARTED APPROX SUMMER OF 2010 OR FALL 2010,APPROX 5 MONTHS CESSATION OF TREATMENT
     Route: 065
     Dates: start: 20101001, end: 20101201

REACTIONS (1)
  - TUBULOINTERSTITIAL NEPHRITIS [None]
